FAERS Safety Report 11741236 (Version 1)
Quarter: 2015Q4

REPORT INFORMATION
  Report Type: Spontaneous
  Country: US (occurrence: US)
  Receive Date: 20151116
  Receipt Date: 20151116
  Transmission Date: 20160304
  Serious: No
  Sender: FDA-Public Use
  Company Number: US-TEVA-584213USA

PATIENT

DRUGS (1)
  1. ARIPIPRAZOLE. [Suspect]
     Active Substance: ARIPIPRAZOLE

REACTIONS (6)
  - Diarrhoea [Unknown]
  - Hyperhidrosis [Unknown]
  - Therapeutic product ineffective [Unknown]
  - Irritability [Unknown]
  - Drooling [Unknown]
  - Product substitution issue [Unknown]
